FAERS Safety Report 5261254-5 (Version None)
Quarter: 2007Q1

REPORT INFORMATION
  Report Type: 
  Country: None (occurrence: None)
  Receive Date: 20070309
  Receipt Date: 20070302
  Transmission Date: 20070707
  Serious: Yes (Other)
  Sender: FDA-Public Use
  Company Number: JP-MERCK-0701USA01240

PATIENT
  Age: 63 Year
  Sex: Female

DRUGS (4)
  1. FOSAMAX [Suspect]
     Route: 048
     Dates: start: 20060412, end: 20061026
  2. FOSAMAX [Suspect]
     Route: 048
     Dates: start: 20061027, end: 20061211
  3. PURSENNID [Concomitant]
     Route: 048
     Dates: start: 20060425
  4. HALCION [Concomitant]
     Route: 048
     Dates: start: 20060802

REACTIONS (1)
  - TEMPOROMANDIBULAR JOINT SYNDROME [None]
